FAERS Safety Report 8707492 (Version 2)
Quarter: 2013Q4

REPORT INFORMATION
  Report Type: Report from Study
  Country: US (occurrence: US)
  Receive Date: 20120804
  Receipt Date: 20131101
  Transmission Date: 20140711
  Serious: No
  Sender: FDA-Public Use
  Company Number: US-009507513-1207USA010843

PATIENT
  Sex: Male

DRUGS (2)
  1. PEG-INTRON [Suspect]
     Indication: HEPATITIS C
     Dosage: UNK
     Dates: start: 20120420
  2. REBETOL [Suspect]
     Indication: HEPATITIS C
     Dosage: UNK
     Dates: start: 20120420

REACTIONS (6)
  - Impatience [Unknown]
  - White blood cell count decreased [Unknown]
  - Thirst [Unknown]
  - Fatigue [Unknown]
  - Dizziness [Unknown]
  - Asthenia [Unknown]
